FAERS Safety Report 11855303 (Version 1)
Quarter: 2015Q4

REPORT INFORMATION
  Report Type: Spontaneous
  Country: PL (occurrence: PL)
  Receive Date: 20151221
  Receipt Date: 20151221
  Transmission Date: 20160305
  Serious: Yes (Hospitalization, Other)
  Sender: FDA-Public Use
  Company Number: PHHY2015PL165416

PATIENT
  Age: 45 Year

DRUGS (1)
  1. VOTRIENT [Suspect]
     Active Substance: PAZOPANIB HYDROCHLORIDE
     Indication: SYNOVIAL SARCOMA
     Dosage: 800 MG, QD
     Route: 065
     Dates: start: 201410

REACTIONS (9)
  - Pleural effusion [Recovered/Resolved]
  - Hypertension [Unknown]
  - Pneumothorax [Recovered/Resolved]
  - Dyspnoea [Unknown]
  - Alanine aminotransferase increased [Recovering/Resolving]
  - Respiratory failure [Recovered/Resolved]
  - Malignant neoplasm progression [Unknown]
  - Hair colour changes [Unknown]
  - Aspartate aminotransferase increased [Recovering/Resolving]

NARRATIVE: CASE EVENT DATE: 20150623
